FAERS Safety Report 8511491-9 (Version None)
Quarter: 2012Q2

REPORT INFORMATION
  Report Type: 
  Country: None (occurrence: None)
  Receive Date: 20120629
  Receipt Date: 20120620
  Transmission Date: 20120825
  Serious: Yes (Other)
  Sender: FDA-Public Use
  Company Number: 2011SP005823

PATIENT
  Age: 70 Year

DRUGS (1)
  1. ROCURONIUM BROMIDE [Suspect]
     Indication: MECHANICAL VENTILATION
     Dosage: 0.5 MCG/KG, INDRP
     Dates: start: 20110128, end: 20110204

REACTIONS (2)
  - NEUROMUSCULAR BLOCK PROLONGED [None]
  - INCORRECT DRUG ADMINISTRATION DURATION [None]
